FAERS Safety Report 9748214 (Version 1)
Quarter: 2013Q4

REPORT INFORMATION
  Report Type: Spontaneous
  Country: US (occurrence: US)
  Receive Date: 20131212
  Receipt Date: 20131212
  Transmission Date: 20140711
  Serious: No
  Sender: FDA-Public Use
  Company Number: US-PFIZER INC-2013354176

PATIENT
  Age: 37 Year
  Sex: Female

DRUGS (6)
  1. EFFEXOR XR [Suspect]
     Indication: ANXIETY
     Dosage: 150 MG, UNK
     Route: 048
     Dates: start: 2001
  2. EFFEXOR XR [Suspect]
     Indication: DEPRESSION
     Dosage: 75 MG, UNK
     Route: 048
  3. EFFEXOR XR [Suspect]
     Dosage: 37.5 MG, UNK
     Route: 048
  4. EFFEXOR XR [Suspect]
     Dosage: UNK
     Route: 048
  5. EFFEXOR XR [Suspect]
     Dosage: UNK
     Route: 048
  6. LISINOPRIL [Concomitant]
     Indication: HYPERTENSION
     Dosage: UNK

REACTIONS (1)
  - Drug withdrawal syndrome [Unknown]
